FAERS Safety Report 6145246-X (Version None)
Quarter: 2009Q2

REPORT INFORMATION
  Report Type: 
  Country: None (occurrence: None)
  Receive Date: 20090406
  Receipt Date: 20090326
  Transmission Date: 20091009
  Serious: No
  Sender: FDA-Public Use
  Company Number: US-B.I. PHARMACEUTICALS,INC./RIDGEFIELD-2009-BP-03870BP

PATIENT
  Sex: Male

DRUGS (5)
  1. COMBIVENT [Suspect]
     Indication: CARDIAC FAILURE CONGESTIVE
     Route: 055
     Dates: start: 20081001
  2. FUROSEMIDE [Concomitant]
     Indication: CARDIAC FAILURE CONGESTIVE
  3. METOPROLOL [Concomitant]
     Indication: CARDIAC FAILURE CONGESTIVE
  4. LISINOPRIL [Concomitant]
     Indication: CARDIAC FAILURE CONGESTIVE
  5. IBUPROFEN [Concomitant]
     Indication: INFLAMMATION

REACTIONS (2)
  - FALSE POSITIVE LABORATORY RESULT [None]
  - URINE ALCOHOL TEST POSITIVE [None]
